FAERS Safety Report 9439344 (Version 3)
Quarter: 2013Q4

REPORT INFORMATION
  Report Type: Spontaneous
  Country: BE (occurrence: BE)
  Receive Date: 20130805
  Receipt Date: 20131202
  Transmission Date: 20140711
  Serious: No
  Sender: FDA-Public Use
  Company Number: BE-ELI_LILLY_AND_COMPANY-BE201307008088

PATIENT
  Age: 56 Year
  Sex: Male
  Weight: 81 kg

DRUGS (7)
  1. CYMBALTA [Suspect]
     Indication: DEPRESSION
     Dosage: 60 MG, UNKNOWN
     Route: 065
     Dates: start: 20130417, end: 20130527
  2. ZOCOR [Concomitant]
     Indication: HYPERCHOLESTEROLAEMIA
     Dosage: 20 MG, UNKNOWN
     Route: 065
  3. ZYLORIC [Concomitant]
     Dosage: 100 MG, UNKNOWN
     Route: 065
  4. PERINDOPRIL [Concomitant]
     Indication: HYPERTENSION
     Dosage: 5 MG, UNKNOWN
     Route: 065
  5. COMBODART [Concomitant]
     Dosage: UNK, UNKNOWN
     Route: 065
  6. BROMAZEPAM [Concomitant]
     Dosage: 6 MG, UNKNOWN
     Route: 065
  7. ESCITALOPRAM [Concomitant]
     Indication: DEPRESSION
     Dosage: 10 MG, UNKNOWN

REACTIONS (7)
  - Alanine aminotransferase increased [Recovered/Resolved]
  - Aspartate aminotransferase increased [Recovered/Resolved]
  - Intentional drug misuse [Unknown]
  - Gamma-glutamyltransferase increased [Unknown]
  - Blood albumin increased [Unknown]
  - Nausea [Unknown]
  - Asthenia [Unknown]
